FAERS Safety Report 6404883-5 (Version None)
Quarter: 2009Q4

REPORT INFORMATION
  Report Type: 
  Country: None (occurrence: None)
  Receive Date: 20091019
  Receipt Date: 20091008
  Transmission Date: 20100525
  Serious: Yes (Hospitalization)
  Sender: FDA-Public Use
  Company Number: US-ELI_LILLY_AND_COMPANY-US200910002448

PATIENT
  Age: 68 Year
  Sex: Male

DRUGS (5)
  1. BYETTA [Suspect]
     Dosage: 5 UCI, UNKNOWN
     Route: 065
     Dates: start: 20080301, end: 20090601
  2. HUMALOG [Concomitant]
     Dosage: UNK, UNKNOWN
     Route: 065
  3. DIOVAN [Concomitant]
     Dosage: 320 MG, UNKNOWN
     Route: 065
  4. NEURONTIN [Concomitant]
     Dosage: UNK, UNKNOWN
     Route: 065
  5. PRAVACHOL [Concomitant]
     Dosage: UNK, UNKNOWN
     Route: 065

REACTIONS (2)
  - OFF LABEL USE [None]
  - PANCREATITIS [None]
